FAERS Safety Report 6572406-6 (Version None)
Quarter: 2010Q1

REPORT INFORMATION
  Report Type: 
  Country: None (occurrence: None)
  Receive Date: 20100205
  Receipt Date: 20100128
  Transmission Date: 20100710
  Serious: Yes (Hospitalization)
  Sender: FDA-Public Use
  Company Number: FR-SANOFI-AVENTIS-2010SA005465

PATIENT
  Age: 72 Year
  Sex: Female

DRUGS (6)
  1. LOVENOX [Suspect]
     Route: 058
     Dates: start: 20091002, end: 20091016
  2. ESOMEPRAZOLE [Suspect]
     Route: 042
     Dates: start: 20091006, end: 20091019
  3. ESOMEPRAZOLE [Suspect]
     Dates: start: 20091104
  4. OCTREOTIDE ACETATE [Suspect]
     Dosage: DOSE:100 MICROGRAM(S)/MILLILITRE
     Route: 058
     Dates: start: 20091006, end: 20091019
  5. SOLU-MEDROL [Concomitant]
     Route: 042
     Dates: start: 20091006, end: 20091019
  6. SOLU-MEDROL [Concomitant]
     Dosage: DECREASE OF DAILY DOSE FROM 50 TO 10MG
     Route: 042
     Dates: start: 20091020

REACTIONS (3)
  - APLASTIC ANAEMIA [None]
  - NEUTROPENIA [None]
  - THROMBOCYTOPENIA [None]
